FAERS Safety Report 6106880-6 (Version None)
Quarter: 2009Q1

REPORT INFORMATION
  Report Type: 
  Country: None (occurrence: None)
  Receive Date: 20090303
  Receipt Date: 20090217
  Transmission Date: 20090719
  Serious: Yes (Other)
  Sender: FDA-Public Use
  Company Number: JP-2009-0325

PATIENT
  Age: 49 Year
  Sex: Female

DRUGS (1)
  1. NAVELBINE [Suspect]
     Indication: BREAST CANCER
     Dosage: 25 MG/M2 IV
     Route: 042
     Dates: start: 20070401

REACTIONS (1)
  - CARDIAC FAILURE [None]
